FAERS Safety Report 9290863 (Version 1)
Quarter: 2013Q2

REPORT INFORMATION
  Report Type: Spontaneous
  Country: US (occurrence: US)
  Receive Date: 20130515
  Receipt Date: 20130515
  Transmission Date: 20140414
  Serious: No
  Sender: FDA-Public Use
  Company Number: US-PFIZER INC-2013149846

PATIENT
  Sex: Female

DRUGS (1)
  1. GEODON [Suspect]
     Dosage: UNK
     Dates: start: 20130513

REACTIONS (6)
  - Formication [Unknown]
  - Restlessness [Unknown]
  - Pain [Unknown]
  - Depression [Unknown]
  - Crying [Unknown]
  - Tremor [Unknown]
